FAERS Safety Report 16850270 (Version 1)
Quarter: 2019Q3

REPORT INFORMATION
  Report Type: Spontaneous
  Country: US (occurrence: US)
  Receive Date: 20190925
  Receipt Date: 20190925
  Transmission Date: 20191005
  Serious: No
  Sender: FDA-Public Use
  Company Number: US-ALKERMES INC.-ALK-2019-004820

PATIENT
  Sex: Female

DRUGS (2)
  1. OTHER THERAPEUTIC PRODUCTS [Concomitant]
     Active Substance: UNSPECIFIED INGREDIENT
     Indication: LIVER DISORDER
     Dosage: UNK
  2. VIVITROL [Suspect]
     Active Substance: NALTREXONE
     Indication: PRODUCT USED FOR UNKNOWN INDICATION
     Dosage: 380 MG, QMO
     Route: 030

REACTIONS (3)
  - Therapeutic response shortened [Not Recovered/Not Resolved]
  - Euphoric mood [Not Recovered/Not Resolved]
  - Drug dependence [Not Recovered/Not Resolved]
